FAERS Safety Report 4978719-3 (Version None)
Quarter: 2006Q2

REPORT INFORMATION
  Report Type: 
  Country: None (occurrence: None)
  Receive Date: 20060414
  Receipt Date: 20060329
  Transmission Date: 20061013
  Serious: Yes (Hospitalization)
  Sender: FDA-Public Use
  Company Number: 222853

PATIENT
  Age: 64 Year
  Sex: Male

DRUGS (14)
  1. AVASTIN [Suspect]
     Indication: COLORECTAL CANCER METASTATIC
     Dosage: 392 MG, Q2W, INTRAVENOUS
     Route: 042
     Dates: start: 20051227, end: 20060221
  2. CAPECITABINE (CAPECITABINE) [Suspect]
     Indication: COLORECTAL CANCER METASTATIC
     Dosage: 5500 MG, QD, ORAL
     Route: 048
     Dates: start: 20051227, end: 20060221
  3. OXALIPLATIN (OXALIPLATIN) [Suspect]
     Indication: COLORECTAL CANCER METASTATIC
     Dosage: 155 MG, Q2W, INTRAVENOUS
     Route: 042
     Dates: start: 20051227, end: 20060221
  4. NORVASC [Concomitant]
  5. ASPIRIN [Concomitant]
  6. TEMAZEPAM [Concomitant]
  7. HEMOCYTE PLUS (ASCORBIC ACID, COPPER NOS, FOLIC ACID, IRON NOS, MAGNES [Concomitant]
  8. DURAGESIC-100 [Concomitant]
  9. MOUTHWASH NOS (MOUTHWAST NOS) [Concomitant]
  10. COMPAZINE [Concomitant]
  11. ACETAMINOPHEN AND OXYCODONE HCL [Concomitant]
  12. BENTYL [Concomitant]
  13. LOMOTIL [Concomitant]
  14. PROCRIT [Concomitant]

REACTIONS (7)
  - ASTHENIA [None]
  - DEHYDRATION [None]
  - DIARRHOEA [None]
  - MUCOSAL INFLAMMATION [None]
  - NAUSEA [None]
  - VOMITING [None]
  - WHITE BLOOD CELL COUNT DECREASED [None]
